FAERS Safety Report 8573143 (Version 2)
Quarter: 2012Q4

REPORT INFORMATION
  Report Type: Report from Study
  Country: JP (occurrence: JP)
  Receive Date: 20120522
  Receipt Date: 20121015
  Transmission Date: 20130627
  Serious: Yes (Hospitalization, Disabling, Other)
  Sender: FDA-Public Use
  Company Number: PHHY2012JP035234

PATIENT
  Age: 84 Year
  Sex: Male
  Weight: 48 kg

DRUGS (2)
  1. AFINITOR [Suspect]
     Indication: METASTATIC RENAL CELL CARCINOMA
     Dosage: 10 mg, daily
     Route: 048
     Dates: start: 20120119, end: 20120215
  2. WARFARIN [Concomitant]
     Dosage: 2 mg,
     Route: 048

REACTIONS (5)
  - Rectal cancer [Not Recovered/Not Resolved]
  - Second primary malignancy [Not Recovered/Not Resolved]
  - Pain in jaw [Recovering/Resolving]
  - Blood glucose increased [Unknown]
  - Stomatitis [Recovering/Resolving]
